FAERS Safety Report 4986170-5 (Version None)
Quarter: 2006Q2

REPORT INFORMATION
  Report Type: 
  Country: None (occurrence: None)
  Receive Date: 20060428
  Receipt Date: 20051123
  Transmission Date: 20061013
  Serious: Yes (Hospitalization, Disabling)
  Sender: FDA-Public Use
  Company Number: US-MERCK-0511USA04405

PATIENT
  Age: 45 Year
  Sex: Female
  Weight: 84 kg

DRUGS (2)
  1. VIOXX [Suspect]
     Route: 048
     Dates: start: 20040101
  2. VIOXX [Concomitant]
     Indication: ARTHRITIS
     Route: 048
     Dates: start: 20001101, end: 20040906

REACTIONS (10)
  - ANXIETY [None]
  - CEREBROVASCULAR ACCIDENT [None]
  - FALL [None]
  - HYPERTENSION [None]
  - HYPERTENSIVE HEART DISEASE [None]
  - MYOCARDIAL INFARCTION [None]
  - MYOCARDIAL ISCHAEMIA [None]
  - SINUSITIS [None]
  - SYNCOPE [None]
  - TUBAL LIGATION [None]
